FAERS Safety Report 12170634 (Version 1)
Quarter: 2016Q1

REPORT INFORMATION
  Report Type: Spontaneous
  Country: US (occurrence: US)
  Receive Date: 20160311
  Receipt Date: 20160311
  Transmission Date: 20160526
  Serious: No
  Sender: FDA-Public Use
  Company Number: US-BAYER-2016-041445

PATIENT
  Age: 9 Year
  Sex: Male
  Weight: 23.13 kg

DRUGS (2)
  1. MIRALAX [Suspect]
     Active Substance: POLYETHYLENE GLYCOL 3350
     Indication: CONSTIPATION
     Dosage: 1 DF, QD
  2. MIRALAX [Suspect]
     Active Substance: POLYETHYLENE GLYCOL 3350
     Indication: CONSTIPATION
     Dosage: 1/2 DF ,QD
     Route: 048
     Dates: start: 2007

REACTIONS (4)
  - Drug administered to patient of inappropriate age [None]
  - Product use issue [None]
  - Product use issue [None]
  - Product physical consistency issue [None]

NARRATIVE: CASE EVENT DATE: 2007
